FAERS Safety Report 6802181-9 (Version None)
Quarter: 2010Q2

REPORT INFORMATION
  Report Type: 
  Country: None (occurrence: None)
  Receive Date: 20100629
  Receipt Date: 20080604
  Transmission Date: 20101027
  Serious: Yes (Other)
  Sender: FDA-Public Use
  Company Number: US-PFIZER INC-2006091102

PATIENT
  Sex: Male

DRUGS (4)
  1. BEXTRA [Suspect]
     Indication: BACK PAIN
     Dosage: 2-3 TIMES A DAY
     Route: 048
     Dates: start: 20031101
  2. BEXTRA [Suspect]
     Indication: ARTHRALGIA
  3. BEXTRA [Suspect]
     Indication: MUSCULOSKELETAL PAIN
  4. CELEBREX [Suspect]

REACTIONS (2)
  - MYOCARDIAL INFARCTION [None]
  - NAUSEA [None]
